FAERS Safety Report 5271914-8 (Version None)
Quarter: 2007Q1

REPORT INFORMATION
  Report Type: 
  Country: None (occurrence: None)
  Receive Date: 20070319
  Receipt Date: 20070312
  Transmission Date: 20070707
  Serious: Yes (Death, Life-Threatening, Hospitalization)
  Sender: FDA-Public Use
  Company Number: 163-C5013-06090949

PATIENT
  Age: 71 Year
  Sex: Male
  Weight: 79.7 kg

DRUGS (9)
  1. CC-5013 (LENALIDOMIDE) (CAPSULES) [Suspect]
     Indication: NON-HODGKIN'S LYMPHOMA
     Dosage: 25 MG, DAILY X 21 DAYS, ORAL
     Route: 048
     Dates: start: 20060711, end: 20060911
  2. LANOXIN [Concomitant]
  3. SOTALOL HCL [Concomitant]
  4. COUMADIN [Concomitant]
  5. ACTOS (PIGOLITAZONE) [Concomitant]
  6. AMARYL [Concomitant]
  7. DUONEB [Concomitant]
  8. PERCOCET [Concomitant]
  9. BETAPACE [Concomitant]

REACTIONS (18)
  - ALANINE AMINOTRANSFERASE INCREASED [None]
  - ARRHYTHMIA [None]
  - ASPARTATE AMINOTRANSFERASE INCREASED [None]
  - ATRIAL FIBRILLATION [None]
  - BACTERIAL INFECTION [None]
  - BLOOD PRESSURE DECREASED [None]
  - CARDIAC FAILURE CONGESTIVE [None]
  - ERYTHEMA [None]
  - HAEMOGLOBIN DECREASED [None]
  - HYPOTENSION [None]
  - LYMPHADENOPATHY [None]
  - PAIN IN EXTREMITY [None]
  - PITTING OEDEMA [None]
  - SEPSIS [None]
  - SINUSITIS [None]
  - TACHYCARDIA [None]
  - THROMBOCYTOPENIA [None]
  - WHITE BLOOD CELL COUNT DECREASED [None]
